FAERS Safety Report 8992898 (Version 3)
Quarter: 2013Q1

REPORT INFORMATION
  Report Type: Report from Study
  Country: JP (occurrence: JP)
  Receive Date: 20130102
  Receipt Date: 20130228
  Transmission Date: 20140127
  Serious: Yes (Hospitalization)
  Sender: FDA-Public Use
  Company Number: JP-JNJFOC-20121211293

PATIENT
  Age: 77 Year
  Sex: Male
  Weight: 68 kg

DRUGS (14)
  1. ABIRATERONE ACETATE [Suspect]
     Indication: PROSTATE CANCER METASTATIC
     Route: 048
     Dates: start: 20121226
  2. ABIRATERONE ACETATE [Suspect]
     Indication: PROSTATE CANCER METASTATIC
     Route: 048
     Dates: start: 20120829, end: 20121216
  3. PREDONINE [Concomitant]
     Indication: PROSTATE CANCER METASTATIC
     Route: 048
     Dates: start: 20120829
  4. ATELEC [Concomitant]
     Indication: HYPERTENSION
     Route: 048
     Dates: end: 20121219
  5. MICOMBI [Concomitant]
     Indication: HYPERTENSION
     Route: 048
     Dates: end: 20121219
  6. CALBLOCK [Concomitant]
     Indication: HYPERTENSION
     Route: 048
     Dates: end: 20121219
  7. LOXONIN [Concomitant]
     Indication: SPINAL COLUMN STENOSIS
  8. GASTER D [Concomitant]
     Indication: GASTRITIS PROPHYLAXIS
     Route: 048
  9. MUCOSTA [Concomitant]
     Indication: GASTRITIS PROPHYLAXIS
     Route: 048
  10. LASIX [Concomitant]
     Indication: PROPHYLAXIS
     Route: 048
  11. LAMISIL [Concomitant]
     Indication: ONYCHOMYCOSIS
     Route: 061
  12. MAGLAX [Concomitant]
     Indication: CONSTIPATION
     Route: 048
  13. ZOLADEX LA [Concomitant]
     Indication: PROSTATE CANCER METASTATIC
     Route: 058
  14. ZOMETA [Concomitant]
     Indication: METASTASES TO BONE
     Route: 041

REACTIONS (1)
  - Dehydration [Recovered/Resolved]
